FAERS Safety Report 5771179-4 (Version None)
Quarter: 2008Q2

REPORT INFORMATION
  Report Type: 
  Country: None (occurrence: None)
  Receive Date: 20080613
  Receipt Date: 20080530
  Transmission Date: 20081010
  Serious: No
  Sender: FDA-Public Use
  Company Number: US-ABBOTT-08P-163-0454467-00

PATIENT
  Sex: Female
  Weight: 109.9 kg

DRUGS (4)
  1. HUMIRA [Suspect]
     Indication: CROHN'S DISEASE
     Dosage: STARTER DOSE
     Dates: start: 20080530, end: 20080530
  2. HUMIRA [Suspect]
  3. OMEPRAZOLE [Concomitant]
     Indication: DRUG USE FOR UNKNOWN INDICATION
  4. CHEWABLE GAS PILL [Concomitant]
     Indication: DRUG USE FOR UNKNOWN INDICATION

REACTIONS (4)
  - EPISTAXIS [None]
  - FACIAL PAIN [None]
  - FLATULENCE [None]
  - SINUSITIS [None]
